FAERS Safety Report 6787384-4 (Version None)
Quarter: 2010Q2

REPORT INFORMATION
  Report Type: 
  Country: None (occurrence: None)
  Receive Date: 20100621
  Receipt Date: 20100608
  Transmission Date: 20101027
  Serious: Yes (Hospitalization)
  Sender: FDA-Public Use
  Company Number: A-JP-2006-13395

PATIENT
  Age: 60 Year
  Sex: Female
  Weight: 40 kg

DRUGS (10)
  1. TRACLEER [Suspect]
     Indication: PULMONARY ARTERIAL HYPERTENSION
     Dosage: 62.5 MG, BID, ORAL
     Route: 048
     Dates: start: 20060805, end: 20061023
  2. PENICILLAMINE [Suspect]
     Indication: SCLERODERMA
     Dosage: 100 MG, QD, ORAL
     Route: 048
     Dates: start: 20050926, end: 20061023
  3. CLARITHROMYCIN [Suspect]
     Indication: GASTRITIS
     Dosage: 200 MG, QD, ORAL
     Route: 048
     Dates: start: 20050926
  4. SERRAPETASE (SERRAPETASE) [Suspect]
     Indication: BRONCHITIS
     Dosage: 10 MG, TID, ORAL
     Route: 048
     Dates: start: 20050926
  5. PRAVASTATIN [Concomitant]
  6. DEXTROMETHORPHAN HYDROBROMIDE (DEXTROMETHORPHAN HYDROBROMIDE) [Concomitant]
  7. CODEINE PHOSPHATE (CODEINE PHOSPHATE) [Concomitant]
  8. CALCITRIOL [Concomitant]
  9. LANSOPRAZOLE [Concomitant]
  10. ASPARTATE CALCIUM  (ASPARTATE CALCIUM) [Concomitant]

REACTIONS (1)
  - EOSINOPHILIC PNEUMONIA [None]
